FAERS Safety Report 15057844 (Version 1)
Quarter: 2018Q2

REPORT INFORMATION
  Report Type: Spontaneous
  Country: FR (occurrence: FR)
  Receive Date: 20180625
  Receipt Date: 20180625
  Transmission Date: 20180711
  Serious: Yes (Death)
  Sender: FDA-Public Use
  Company Number: FR-TEVA-2018-FR-912928

PATIENT
  Age: 64 Year
  Sex: Female
  Weight: 86 kg

DRUGS (4)
  1. ALDACTONE 50 MG, COMPRIM? PELLICUL? S?CABLE [Concomitant]
     Indication: ASCITES
     Dosage: 1 DOSAGE FORMS DAILY; SCORED
     Route: 048
     Dates: start: 20180328, end: 20180408
  2. METFORMINE [Suspect]
     Active Substance: METFORMIN HYDROCHLORIDE
     Indication: TYPE 1 DIABETES MELLITUS
     Dosage: 2 GRAM DAILY;
     Route: 048
     Dates: end: 20180408
  3. COAPROVEL 300 MG/12,5 MG, COMPRIM? [Concomitant]
     Indication: HYPERTENSION
     Dosage: 1 DOSAGE FORMS DAILY;
     Route: 048
     Dates: end: 20180408
  4. LASILIX 40 MG, COMPRIM? S?CABLE [Concomitant]
     Active Substance: FUROSEMIDE
     Indication: ASCITES
     Dosage: SCORED TABLET
     Route: 048
     Dates: start: 20180328, end: 20180408

REACTIONS (2)
  - Drug level increased [Fatal]
  - Lactic acidosis [Fatal]

NARRATIVE: CASE EVENT DATE: 20180409
